FAERS Safety Report 4709057-1 (Version None)
Quarter: 2005Q3

REPORT INFORMATION
  Report Type: 
  Country: None (occurrence: None)
  Receive Date: 20050707
  Receipt Date: 20050622
  Transmission Date: 20060218
  Serious: Yes (Other)
  Sender: FDA-Public Use
  Company Number: 05-000447

PATIENT
  Age: 15 Year
  Sex: Female
  Weight: 81.6 kg

DRUGS (2)
  1. ESTROSTEP FE [Suspect]
     Indication: CONTRACEPTION
     Dosage: 20-30-35/1000UG QD, ORAL
     Route: 048
     Dates: start: 20050301, end: 20050501
  2. KARIVA [Suspect]
     Indication: CONTRACEPTION
     Dosage: 1PILL, QD,ORAL
     Route: 048
     Dates: start: 20050501, end: 20050501

REACTIONS (2)
  - FACTOR V DEFICIENCY [None]
  - PULMONARY EMBOLISM [None]
